FAERS Safety Report 7103264-9 (Version None)
Quarter: 2010Q4

REPORT INFORMATION
  Report Type: 
  Country: None (occurrence: None)
  Receive Date: 20101115
  Receipt Date: 20091114
  Transmission Date: 20110411
  Serious: No
  Sender: FDA-Public Use
  Company Number: US-KINGPHARMUSA00001-K200901450

PATIENT
  Sex: Female

DRUGS (2)
  1. LEVOXYL [Suspect]
     Dosage: 25 MCG, QOD
  2. LEVOXYL [Suspect]
     Dosage: 50 MCG, QOD

REACTIONS (4)
  - DRUG INEFFECTIVE [None]
  - DRUG INTOLERANCE [None]
  - HOT FLUSH [None]
  - SWELLING [None]
